FAERS Safety Report 20347364 (Version 2)
Quarter: 2022Q1

REPORT INFORMATION
  Report Type: Report from Study
  Country: US (occurrence: None)
  Receive Date: 20220118
  Receipt Date: 20220315
  Transmission Date: 20220423
  Serious: Yes (Hospitalization, Other)
  Sender: FDA-Public Use
  Company Number: US-ROCHE-2812414

PATIENT
  Age: 65 Year
  Sex: Female
  Weight: 64.18 kg

DRUGS (5)
  1. ATEZOLIZUMAB [Suspect]
     Active Substance: ATEZOLIZUMAB
     Indication: Breast cancer
     Dosage: LAST ADMINISTERED DATE: 03/FEB/2021
     Route: 041
     Dates: start: 20210113, end: 20210203
  2. LEVOTHYROXINE [Concomitant]
     Active Substance: LEVOTHYROXINE
  3. LOPERAMIDE [Concomitant]
     Active Substance: LOPERAMIDE
  4. LOSARTAN [Concomitant]
     Active Substance: LOSARTAN
  5. AMITRIPTYLINE [Concomitant]
     Active Substance: AMITRIPTYLINE

REACTIONS (3)
  - Renal colic [Recovered/Resolved with Sequelae]
  - Urinary tract obstruction [Unknown]
  - Hypertension [Unknown]

NARRATIVE: CASE EVENT DATE: 20210214
